FAERS Safety Report 7127705-6 (Version None)
Quarter: 2010Q4

REPORT INFORMATION
  Report Type: 
  Country: None (occurrence: None)
  Receive Date: 20101130
  Receipt Date: 20101119
  Transmission Date: 20110411
  Serious: No
  Sender: FDA-Public Use
  Company Number: US-BIOGENIDEC-2010BI034640

PATIENT
  Sex: Female

DRUGS (3)
  1. TYSABRI [Suspect]
     Indication: MULTIPLE SCLEROSIS
     Route: 042
     Dates: start: 20071220, end: 20091029
  2. TYSABRI [Suspect]
     Route: 042
     Dates: start: 20100401
  3. AMPYRA [Concomitant]
     Indication: GAIT DISTURBANCE
     Dates: start: 20100901

REACTIONS (7)
  - ALOPECIA [None]
  - BALANCE DISORDER [None]
  - CLUMSINESS [None]
  - DRUG EFFECT DECREASED [None]
  - FALL [None]
  - INJURY [None]
  - TREMOR [None]
